FAERS Safety Report 19031771 (Version 5)
Quarter: 2021Q4

REPORT INFORMATION
  Report Type: Report from Study
  Country: BR (occurrence: BR)
  Receive Date: 20210319
  Receipt Date: 20211124
  Transmission Date: 20220303
  Serious: Yes (Other)
  Sender: FDA-Public Use
  Company Number: BR-TAKEDA-BR202007650

PATIENT
  Age: 9 Year
  Sex: Male
  Weight: 32 kg

DRUGS (9)
  1. IDURSULFASE [Suspect]
     Active Substance: IDURSULFASE
     Indication: Mucopolysaccharidosis II
     Dosage: 3 VIALS PER INFUSION
     Route: 065
  2. IDURSULFASE [Suspect]
     Active Substance: IDURSULFASE
     Dosage: UNK
     Route: 065
     Dates: start: 20200124
  3. IDURSULFASE [Suspect]
     Active Substance: IDURSULFASE
     Dosage: 3 DOSAGE FORM, 1/WEEK
     Route: 042
  4. IDURSULFASE [Suspect]
     Active Substance: IDURSULFASE
     Dosage: 4 VIALS, 1/WEEK
     Route: 042
     Dates: start: 20170804
  5. IDURSULFASE [Suspect]
     Active Substance: IDURSULFASE
     Dosage: 4 DOSAGE FORM, QD
     Route: 042
  6. RISPERIDONE [Concomitant]
     Active Substance: RISPERIDONE
     Indication: Agitation
     Dosage: 2 MILLIGRAM, QD
  7. VALPROATE SODIUM [Concomitant]
     Active Substance: VALPROATE SODIUM
     Indication: Agitation
     Dosage: 4 MILLILITER, QD
  8. ENALAPRIL [Concomitant]
     Active Substance: ENALAPRIL
     Indication: Hypertension
     Dosage: 5 MILLIGRAM, QD
  9. ALBENDAZOLE [Concomitant]
     Active Substance: ALBENDAZOLE
     Indication: Agitation
     Dosage: 1 MILLIGRAM, QD
     Route: 065

REACTIONS (11)
  - Intellectual disability [Unknown]
  - Pyrexia [Unknown]
  - Agitation [Unknown]
  - Hypertension [Unknown]
  - Speech disorder [Unknown]
  - Hypoacusis [Unknown]
  - Abdominal pain [Unknown]
  - Diarrhoea [Recovered/Resolved]
  - Inappropriate schedule of product administration [Unknown]
  - Inability to afford medication [Unknown]
  - Off label use [Unknown]

NARRATIVE: CASE EVENT DATE: 20211118
